FAERS Safety Report 5147549-4 (Version None)
Quarter: 2006Q4

REPORT INFORMATION
  Report Type: 
  Country: None (occurrence: None)
  Receive Date: 20061106
  Receipt Date: 20061024
  Transmission Date: 20070319
  Serious: Yes (Other)
  Sender: FDA-Public Use
  Company Number: 2006130804

PATIENT
  Sex: Female

DRUGS (2)
  1. CHANTIX [Suspect]
     Indication: SMOKING CESSATION THERAPY
     Dates: start: 20061001
  2. LISINOPRIL [Suspect]
     Indication: HYPERTENSION
     Dates: start: 20061001

REACTIONS (7)
  - COUGH [None]
  - DYSPHAGIA [None]
  - GLOSSODYNIA [None]
  - PHARYNGEAL OEDEMA [None]
  - RASH [None]
  - TONGUE COATED [None]
  - TONGUE ULCERATION [None]
